FAERS Safety Report 7764205-4 (Version None)
Quarter: 2011Q3

REPORT INFORMATION
  Report Type: 
  Country: None (occurrence: None)
  Receive Date: 20110921
  Receipt Date: 20110907
  Transmission Date: 20111222
  Serious: Yes (Hospitalization, Other)
  Sender: FDA-Public Use
  Company Number: PHHO2010US14355

PATIENT
  Sex: Female
  Weight: 51.4 kg

DRUGS (11)
  1. LOSARTAN POTASSIUM [Concomitant]
     Indication: HYPERTENSION
  2. MYCOPHENOLATE MOFETIL [Suspect]
     Indication: RENAL TRANSPLANT
     Dosage: 1000 MG, BID
     Route: 048
     Dates: start: 20100824, end: 20110504
  3. PREDNISONE [Suspect]
     Indication: RENAL TRANSPLANT
     Dosage: 5 MG, QD
     Route: 048
     Dates: start: 20101023
  4. PROGRAF [Suspect]
     Indication: RENAL TRANSPLANT
     Dosage: 4 MG, BID
     Route: 048
     Dates: start: 20101209
  5. MYCOPHENOLATE MOFETIL [Suspect]
     Dosage: 1000 MG, BID
     Route: 048
     Dates: end: 20110516
  6. BACTRIM [Suspect]
     Indication: PROPHYLAXIS
  7. LASIX [Concomitant]
     Indication: OEDEMA
  8. PROGRAF [Suspect]
     Dosage: 2 MG, BID
     Route: 048
     Dates: start: 20110524
  9. PROGRAF [Suspect]
     Dosage: 4 MG AM, 5 MG PM
     Route: 048
     Dates: end: 20110516
  10. MYCOPHENOLATE MOFETIL [Suspect]
     Dosage: 1000 MG, BID
     Route: 048
     Dates: start: 20110516, end: 20110604
  11. PROGRAF [Suspect]
     Dosage: UNK
     Route: 048
     Dates: start: 20110516

REACTIONS (13)
  - CYTOMEGALOVIRUS VIRAEMIA [None]
  - UROSEPSIS [None]
  - SINUSITIS [None]
  - NEPHROLITHIASIS [None]
  - PNEUMONIA KLEBSIELLA [None]
  - RENAL FAILURE [None]
  - NEUTROPENIA [None]
  - TUBULOINTERSTITIAL NEPHRITIS [None]
  - PYREXIA [None]
  - URINARY TRACT INFECTION [None]
  - RHINORRHOEA [None]
  - DIARRHOEA [None]
  - NAUSEA [None]
